FAERS Safety Report 13376838 (Version 1)
Quarter: 2017Q1

REPORT INFORMATION
  Report Type: Spontaneous
  Country: US (occurrence: US)
  Receive Date: 20170328
  Receipt Date: 20170328
  Transmission Date: 20170429
  Serious: Yes (Death)
  Sender: FDA-Public Use
  Company Number: None

PATIENT
  Age: 61 Year
  Sex: Male

DRUGS (12)
  1. TRULICITY [Suspect]
     Active Substance: DULAGLUTIDE
     Indication: DIABETES MELLITUS
     Dosage: ?          OTHER STRENGTH:MG/ML;QUANTITY:1 INJECTION(S);?
     Route: 058
     Dates: start: 20170301, end: 20170315
  2. TEROFIBRATE [Concomitant]
  3. LISINOPRIL. [Concomitant]
     Active Substance: LISINOPRIL
  4. AMOLODIPINE [Concomitant]
  5. CARUDIOLAL [Concomitant]
  6. CALCHICINIC [Concomitant]
  7. ASPIRIN. [Concomitant]
     Active Substance: ASPIRIN
  8. COQ10 [Concomitant]
     Active Substance: UBIDECARENONE
  9. ALLOPURINOL. [Concomitant]
     Active Substance: ALLOPURINOL
  10. TRAMADOL. [Concomitant]
     Active Substance: TRAMADOL
  11. METFORMIN [Concomitant]
     Active Substance: METFORMIN HYDROCHLORIDE
  12. GLIMEPRIDE [Concomitant]
     Active Substance: GLIMEPIRIDE

REACTIONS (1)
  - Death [None]

NARRATIVE: CASE EVENT DATE: 20170315
